FAERS Safety Report 7754263-5 (Version None)
Quarter: 2011Q3

REPORT INFORMATION
  Report Type: 
  Country: None (occurrence: None)
  Receive Date: 20110915
  Receipt Date: 20110906
  Transmission Date: 20111222
  Serious: Yes (Other)
  Sender: FDA-Public Use
  Company Number: US-ASTRAZENECA-2011SE48774

PATIENT
  Sex: Female

DRUGS (1)
  1. SEROQUEL [Suspect]
     Indication: BIPOLAR DISORDER
     Route: 048
     Dates: start: 20050101, end: 20110701

REACTIONS (5)
  - CATARACT [None]
  - MENTAL IMPAIRMENT [None]
  - HYPOACUSIS [None]
  - ROAD TRAFFIC ACCIDENT [None]
  - THERAPY CESSATION [None]
